FAERS Safety Report 13997460 (Version 1)
Quarter: 2017Q3

REPORT INFORMATION
  Report Type: Spontaneous
  Country: ZA (occurrence: ZA)
  Receive Date: 20170921
  Receipt Date: 20170921
  Transmission Date: 20171128
  Serious: Yes (Other)
  Sender: FDA-Public Use
  Company Number: ZA-LUPIN PHARMACEUTICALS INC.-2017-05468

PATIENT
  Sex: Female

DRUGS (6)
  1. DORMONOCT [Suspect]
     Active Substance: LOPRAZOLAM
     Indication: DEPRESSION
     Dosage: 2 MG, QD
     Route: 048
  2. CATAFLAM [Suspect]
     Active Substance: DICLOFENAC POTASSIUM
     Indication: INFLAMMATION
     Dosage: 50 MG, QD
     Route: 048
  3. NARAMIG [Suspect]
     Active Substance: NARATRIPTAN HYDROCHLORIDE
     Indication: NERVOUS SYSTEM DISORDER
     Dosage: 2.5 MG, QD
     Route: 048
  4. ZARTAN [Suspect]
     Active Substance: LOSARTAN POTASSIUM
     Indication: HYPERTENSION
     Dosage: 100 MG, QD
     Route: 048
  5. TOPAMAX [Suspect]
     Active Substance: TOPIRAMATE
     Indication: EPILEPSY
     Dosage: 25 MG, QD
     Route: 048
  6. BRAZEPAM [Suspect]
     Active Substance: BROMAZEPAM
     Indication: STRESS
     Dosage: 6 MG, QD
     Route: 048

REACTIONS (3)
  - Cerebrovascular accident [Unknown]
  - Migraine [Unknown]
  - Speech disorder [Unknown]
